FAERS Safety Report 25982767 (Version 2)
Quarter: 2025Q4

REPORT INFORMATION
  Report Type: Spontaneous
  Country: US (occurrence: US)
  Receive Date: 20251031
  Receipt Date: 20251203
  Transmission Date: 20260117
  Serious: No
  Sender: MICRO LABS LIMITED
  Company Number: US-MICRO LABS LIMITED-ML2025-05550

PATIENT
  Age: 73 Year
  Sex: Male

DRUGS (1)
  1. DORZOLAMIDE HYDROCHLORIDE AND TIMOLOL MALEATE OPHTHALMIC SOLUTION [Suspect]
     Active Substance: DORZOLAMIDE HYDROCHLORIDE\TIMOLOL MALEATE
     Indication: Product used for unknown indication
     Dosage: STRENGTH: 2%/0.5%; IT WAS EMPTY BY 20 OCT 2025
     Route: 047
     Dates: start: 20250908

REACTIONS (4)
  - Oropharyngeal discomfort [Unknown]
  - Product use complaint [Unknown]
  - Product packaging quantity issue [Unknown]
  - Product quality issue [Unknown]
